FAERS Safety Report 10143138 (Version 1)
Quarter: 2014Q2

REPORT INFORMATION
  Report Type: Report from Study
  Country: US (occurrence: US)
  Receive Date: 20140430
  Receipt Date: 20140430
  Transmission Date: 20141212
  Serious: Yes (Other)
  Sender: FDA-Public Use
  Company Number: US-ROCHE-1389839

PATIENT
  Age: 54 Year
  Sex: Female
  Weight: 81.72 kg

DRUGS (12)
  1. ACTEMRA [Suspect]
     Indication: RHEUMATOID ARTHRITIS
     Route: 058
     Dates: start: 20140226
  2. ACTEMRA [Suspect]
     Route: 058
     Dates: start: 20140402
  3. ACTEMRA [Suspect]
     Route: 058
     Dates: start: 20140409
  4. ACTEMRA [Suspect]
     Route: 058
     Dates: start: 20140416
  5. ACTEMRA [Suspect]
     Route: 058
     Dates: start: 20140423
  6. METHOTREXATE [Concomitant]
     Indication: RHEUMATOID ARTHRITIS
     Route: 058
  7. ALLEGRA [Concomitant]
     Indication: RASH
     Route: 065
     Dates: start: 20140226
  8. CELEBREX [Concomitant]
     Indication: RHEUMATOID ARTHRITIS
     Route: 048
  9. SINGULAIR [Concomitant]
     Indication: RASH
     Route: 065
     Dates: start: 20140226
  10. WARFARIN [Concomitant]
     Route: 065
  11. LEVOTHYROXINE [Concomitant]
     Route: 065
  12. VITAMIN D2 [Concomitant]
     Dosage: 50,000 UNIT NOT REPORTED
     Route: 065

REACTIONS (3)
  - Rash [Not Recovered/Not Resolved]
  - Pruritus [Not Recovered/Not Resolved]
  - Oral mucosal discolouration [Recovered/Resolved]
